FAERS Safety Report 6230562-3 (Version None)
Quarter: 2009Q2

REPORT INFORMATION
  Report Type: 
  Country: None (occurrence: None)
  Receive Date: 20090615
  Receipt Date: 20090508
  Transmission Date: 20091009
  Serious: No
  Sender: FDA-Public Use
  Company Number: US-ABBOTT-09P-163-0570636-00

PATIENT
  Age: 74 Year
  Sex: Male
  Weight: 69.916 kg

DRUGS (6)
  1. TRILIPIX [Suspect]
     Indication: BLOOD CHOLESTEROL INCREASED
     Dates: start: 20090301
  2. CRESTOR [Concomitant]
     Indication: BLOOD CHOLESTEROL INCREASED
  3. LOPRESSOR [Concomitant]
     Indication: MYOCARDIAL INFARCTION
  4. ASPIRIN [Concomitant]
     Indication: MYOCARDIAL INFARCTION
  5. DILANTIN [Concomitant]
     Indication: CONVULSION
     Dates: start: 19900101
  6. MULTIPLE VITAMINS [Concomitant]
     Indication: VITAMIN SUPPLEMENTATION

REACTIONS (5)
  - DYSSTASIA [None]
  - FALL [None]
  - HYPOAESTHESIA [None]
  - INSOMNIA [None]
  - MUSCLE SPASMS [None]
